FAERS Safety Report 19348442 (Version 1)
Quarter: 2021Q2

REPORT INFORMATION
  Report Type: Spontaneous
  Country: US (occurrence: US)
  Receive Date: 20210528
  Receipt Date: 20210528
  Transmission Date: 20210717
  Serious: No
  Sender: FDA-Public Use
  Company Number: None

PATIENT

DRUGS (1)
  1. GAMUNEX?C [Suspect]
     Active Substance: HUMAN IMMUNOGLOBULIN G
     Dosage: ?          OTHER FREQUENCY:MONTHLY;?
     Route: 042
     Dates: start: 20210528, end: 20210528

REACTIONS (3)
  - Throat irritation [None]
  - Cough [None]
  - Urticaria [None]

NARRATIVE: CASE EVENT DATE: 20210528
